FAERS Safety Report 6959501-4 (Version None)
Quarter: 2010Q3

REPORT INFORMATION
  Report Type: 
  Country: None (occurrence: None)
  Receive Date: 20100827
  Receipt Date: 20100817
  Transmission Date: 20110219
  Serious: Yes (Hospitalization)
  Sender: FDA-Public Use
  Company Number: 2009SP042237

PATIENT
  Age: 42 Year
  Sex: Female
  Weight: 63.5036 kg

DRUGS (6)
  1. NUVARING [Suspect]
     Indication: DYSMENORRHOEA
     Dates: start: 20070901, end: 20080101
  2. NUVARING [Suspect]
     Indication: MENOMETRORRHAGIA
     Dates: start: 20070901, end: 20080101
  3. IRON [Concomitant]
  4. ASCORBIC ACID [Concomitant]
  5. CLARITIN [Concomitant]
  6. MULTI-VITAMINS [Concomitant]

REACTIONS (2)
  - DEEP VEIN THROMBOSIS [None]
  - SARCOIDOSIS [None]
